FAERS Safety Report 10461303 (Version 1)
Quarter: 2014Q3

REPORT INFORMATION
  Report Type: Spontaneous
  Country: AU (occurrence: None)
  Receive Date: 20140916
  Receipt Date: 20140916
  Transmission Date: 20150326
  Serious: Yes (Hospitalization, Other)
  Sender: FDA-Public Use
  Company Number: C-14-117

PATIENT
  Age: 51 Year
  Sex: Female

DRUGS (1)
  1. INDOMETHACIN. [Suspect]
     Active Substance: INDOMETHACIN
     Indication: COSTOVERTEBRAL ANGLE TENDERNESS
     Dosage: SUPPOSITORY

REACTIONS (3)
  - Fibromuscular dysplasia [None]
  - Cerebral vasoconstriction [None]
  - Subarachnoid haemorrhage [None]
